FAERS Safety Report 7946722-7 (Version None)
Quarter: 2011Q4

REPORT INFORMATION
  Report Type: 
  Country: None (occurrence: None)
  Receive Date: 20111129
  Receipt Date: 20111123
  Transmission Date: 20120403
  Serious: Yes (Other)
  Sender: FDA-Public Use
  Company Number: US-BAYER-2011-114200

PATIENT
  Age: 78 Year
  Sex: Female
  Weight: 72.562 kg

DRUGS (6)
  1. LIPITOR [Concomitant]
  2. PLAVIX [Concomitant]
  3. ASPIRIN [Concomitant]
  4. ATENOLOL [Concomitant]
  5. MULTI-VITAMINS [Suspect]
     Dosage: 1 DF, QD, BOTTLE COUNT 60S
     Route: 048
     Dates: start: 20111101, end: 20111101
  6. COZAAR [Concomitant]

REACTIONS (2)
  - FOREIGN BODY [None]
  - CHOKING [None]
